FAERS Safety Report 14033431 (Version 1)
Quarter: 2017Q4

REPORT INFORMATION
  Report Type: Report from Study
  Country: DE (occurrence: DE)
  Receive Date: 20171003
  Receipt Date: 20171003
  Transmission Date: 20180321
  Serious: Yes (Hospitalization)
  Sender: FDA-Public Use
  Company Number: DE-BRISTOL-MYERS SQUIBB COMPANY-BMS-2017-017645

PATIENT
  Age: 60 Year
  Sex: Female

DRUGS (2)
  1. ABATACEPT [Suspect]
     Active Substance: ABATACEPT
     Indication: RHEUMATOID ARTHRITIS
     Dosage: 125 MG, QWK
     Route: 058
     Dates: end: 20170812
  2. HYDROXYCHLOROQUINE [Suspect]
     Active Substance: HYDROXYCHLOROQUINE
     Indication: PRODUCT USED FOR UNKNOWN INDICATION
     Dosage: UNK
     Route: 065
     Dates: end: 201707

REACTIONS (5)
  - Radiculopathy [Not Recovered/Not Resolved]
  - Erythema [Recovered/Resolved]
  - Cervicobrachial syndrome [Not Recovered/Not Resolved]
  - Alopecia [Recovered/Resolved]
  - Photodermatosis [Recovered/Resolved]

NARRATIVE: CASE EVENT DATE: 20161205
